FAERS Safety Report 5712149-1 (Version None)
Quarter: 2008Q2

REPORT INFORMATION
  Report Type: 
  Country: None (occurrence: None)
  Receive Date: 20080421
  Receipt Date: 20080421
  Transmission Date: 20081010
  Serious: No
  Sender: FDA-Public Use
  Company Number: None

PATIENT
  Age: 25 Year
  Sex: Male
  Weight: 65.7716 kg

DRUGS (1)
  1. XYZAL [Suspect]
     Indication: URTICARIA
     Dosage: 5 MG QHS ORAL
     Route: 048
     Dates: start: 20080113

REACTIONS (1)
  - ABNORMAL DREAMS [None]
